FAERS Safety Report 4519266-2 (Version None)
Quarter: 2004Q4

REPORT INFORMATION
  Report Type: 
  Country: None (occurrence: None)
  Receive Date: 20041201
  Receipt Date: 20041118
  Transmission Date: 20050328
  Serious: Yes (Death, Hospitalization)
  Sender: FDA-Public Use
  Company Number: RS004703-J

PATIENT
  Age: 68 Year
  Sex: Male
  Weight: 86 kg

DRUGS (7)
  1. RABEPRAZOLE SODIUM [Suspect]
     Indication: GASTRIC ULCER
     Dosage: 10 MG, 1 IN 1 D, ORAL
     Route: 048
     Dates: start: 20040728, end: 20040913
  2. MUCOSTA (REBAMIPIDE) [Concomitant]
  3. FERROMIA (FERROUS CITRATE) [Concomitant]
  4. LANIRAPID (METILDIGOXIN) [Concomitant]
  5. BLUTAL (BLUTAL) [Concomitant]
  6. CALOMIDE (COBAMAMIDE) [Concomitant]
  7. FERO-GRADUMET (FERROUS SULFATE) [Concomitant]

REACTIONS (8)
  - BONE MARROW DEPRESSION [None]
  - CARDIAC FAILURE ACUTE [None]
  - ENDOSCOPY UPPER GASTROINTESTINAL TRACT ABNORMAL [None]
  - HYPOCHROMIC ANAEMIA [None]
  - LYMPHOCYTE STIMULATION TEST POSITIVE [None]
  - MULTIPLE MYELOMA [None]
  - SCAR [None]
  - THERAPY NON-RESPONDER [None]
